FAERS Safety Report 13779125 (Version 1)
Quarter: 2017Q3

REPORT INFORMATION
  Report Type: Spontaneous
  Country: US (occurrence: US)
  Receive Date: 20170721
  Receipt Date: 20170721
  Transmission Date: 20171127
  Serious: No
  Sender: FDA-Public Use
  Company Number: US-CIPLA LTD.-2016US10345

PATIENT

DRUGS (4)
  1. WARFARIN [Suspect]
     Active Substance: WARFARIN
     Dosage: 5 MG, UNK
     Route: 065
  2. WARFARIN [Interacting]
     Active Substance: WARFARIN
     Dosage: 5 MG, UNK
     Route: 065
     Dates: start: 201601, end: 20160716
  3. BACTRIM [Interacting]
     Active Substance: SULFAMETHOXAZOLE\TRIMETHOPRIM
     Dosage: 800/160MG, BID, 10 DAYS IN JAN-2016 AND 10 DAYS IN FEB-2016
     Route: 065
  4. CIPRO [Interacting]
     Active Substance: CIPROFLOXACIN HYDROCHLORIDE
     Dosage: 500 MG, BID, 5 DAYS IN JAN-2016 AND 14 DAYS IN FEB-2016
     Route: 065
     Dates: start: 201601

REACTIONS (2)
  - International normalised ratio abnormal [Unknown]
  - Drug interaction [Unknown]
